FAERS Safety Report 9602074 (Version 1)
Quarter: 2013Q4

REPORT INFORMATION
  Report Type: Spontaneous
  Country: JP (occurrence: None)
  Receive Date: 20131002
  Receipt Date: 20131002
  Transmission Date: 20140711
  Serious: Yes (Other)
  Sender: FDA-Public Use
  Company Number: FK201304367

PATIENT
  Age: 38 Year
  Sex: 0

DRUGS (1)
  1. OXYTOCIN [Suspect]
     Indication: PRODUCT USED FOR UNKNOWN INDICATION

REACTIONS (3)
  - Myocardial ischaemia [None]
  - Heart rate increased [None]
  - Blood pressure decreased [None]
